FAERS Safety Report 9649729 (Version 1)
Quarter: 2013Q4

REPORT INFORMATION
  Report Type: Spontaneous
  Country: FR (occurrence: FR)
  Receive Date: 20131028
  Receipt Date: 20131028
  Transmission Date: 20140711
  Serious: Yes (Other)
  Sender: FDA-Public Use
  Company Number: FR-ROCHE-1290673

PATIENT
  Age: 17 Year
  Sex: Female

DRUGS (20)
  1. VALIUM [Suspect]
     Indication: PRODUCT USED FOR UNKNOWN INDICATION
     Route: 065
     Dates: start: 20130626, end: 20130725
  2. VALPROATE SODIUM [Suspect]
     Indication: PRODUCT USED FOR UNKNOWN INDICATION
     Route: 042
     Dates: start: 20130630, end: 20130705
  3. LAMOTRIGINE [Suspect]
     Indication: PRODUCT USED FOR UNKNOWN INDICATION
     Route: 048
     Dates: start: 20130628, end: 20130630
  4. PRODILANTIN [Suspect]
     Indication: PRODUCT USED FOR UNKNOWN INDICATION
     Route: 042
     Dates: start: 20130626, end: 20130628
  5. PRODILANTIN [Suspect]
     Route: 042
     Dates: start: 20130707
  6. PRODILANTIN [Suspect]
     Route: 042
     Dates: start: 20130724
  7. PRODILANTIN [Suspect]
     Route: 042
     Dates: start: 20130727
  8. PRODILANTIN [Suspect]
     Route: 042
     Dates: start: 20130728
  9. DI-HYDAN [Suspect]
     Indication: PRODUCT USED FOR UNKNOWN INDICATION
     Route: 065
     Dates: start: 20130703, end: 20130725
  10. URBANYL [Suspect]
     Indication: PRODUCT USED FOR UNKNOWN INDICATION
     Route: 065
     Dates: start: 20130703, end: 20130705
  11. ZEBINIX [Concomitant]
  12. LAMICTAL [Concomitant]
  13. KEPPRA [Concomitant]
     Dosage: STARTED IN OCTOBER
     Route: 065
  14. ZONEGRAN [Concomitant]
     Dosage: STARTED IN OCTOBER
     Route: 065
  15. THIOPENTAL [Concomitant]
     Route: 065
     Dates: start: 20130728
  16. PROPOFOL [Concomitant]
     Route: 065
     Dates: start: 20130726
  17. SUFENTANIL [Concomitant]
     Route: 065
     Dates: start: 20130726
  18. MIDAZOLAM MALEATE [Concomitant]
     Route: 065
     Dates: start: 20130726
  19. RITUXIMAB [Concomitant]
     Route: 065
     Dates: start: 20130724
  20. VIMPAT [Concomitant]

REACTIONS (2)
  - Rash morbilliform [Recovering/Resolving]
  - Face oedema [Recovering/Resolving]
